FAERS Safety Report 7057320-4 (Version None)
Quarter: 2010Q4

REPORT INFORMATION
  Report Type: 
  Country: None (occurrence: None)
  Receive Date: 20101022
  Receipt Date: 20101019
  Transmission Date: 20110411
  Serious: Yes (Other)
  Sender: FDA-Public Use
  Company Number: US-BRISTOL-MYERS SQUIBB COMPANY-15342090

PATIENT
  Sex: Female

DRUGS (1)
  1. KENALOG [Suspect]
     Indication: NECK PAIN
     Route: 008

REACTIONS (4)
  - BALANCE DISORDER [None]
  - GAIT DISTURBANCE [None]
  - INJECTION SITE ATROPHY [None]
  - TEMPERATURE REGULATION DISORDER [None]
